FAERS Safety Report 24631625 (Version 1)
Quarter: 2024Q4

REPORT INFORMATION
  Report Type: Spontaneous
  Country: US (occurrence: US)
  Receive Date: 20241118
  Receipt Date: 20241118
  Transmission Date: 20250114
  Serious: No
  Sender: MERCK
  Company Number: US-009507513-2411USA002380

PATIENT
  Sex: Female

DRUGS (1)
  1. STROMECTOL [Suspect]
     Active Substance: IVERMECTIN
     Route: 048

REACTIONS (4)
  - Infection parasitic [Not Recovered/Not Resolved]
  - Tooth loss [Not Recovered/Not Resolved]
  - Illness [Not Recovered/Not Resolved]
  - Prescription drug used without a prescription [Unknown]
